FAERS Safety Report 21491502 (Version 1)
Quarter: 2022Q4

REPORT INFORMATION
  Report Type: Spontaneous
  Country: US (occurrence: US)
  Receive Date: 20221021
  Receipt Date: 20221021
  Transmission Date: 20230113
  Serious: No
  Sender: FDA-Public Use
  Company Number: US-TARO PHARMACEUTICALS USA INC.-2021TAR01061

PATIENT

DRUGS (3)
  1. PHENYTOIN SODIUM EXTENDED [Suspect]
     Active Substance: PHENYTOIN SODIUM
     Indication: Epilepsy
     Dosage: 600 MG, DAILY
     Route: 048
     Dates: start: 2021
  2. DILANTIN [Suspect]
     Active Substance: PHENYTOIN
     Indication: Product used for unknown indication
     Dosage: 100 MG, FIVE CAPSULES, IN MORNING
     Route: 048
     Dates: start: 1992, end: 2021
  3. DILANTIN [Suspect]
     Active Substance: PHENYTOIN
     Dosage: 30 MG, IN MORNING
     Route: 048
     Dates: start: 1992, end: 2021

REACTIONS (1)
  - Diarrhoea [Not Recovered/Not Resolved]

NARRATIVE: CASE EVENT DATE: 20210101
